FAERS Safety Report 24052942 (Version 2)
Quarter: 2024Q4

REPORT INFORMATION
  Report Type: Spontaneous
  Country: FR (occurrence: FR)
  Receive Date: 20240705
  Receipt Date: 20241213
  Transmission Date: 20250114
  Serious: Yes (Other)
  Sender: GENMAB
  Company Number: FR-GENMAB-2024-02358

PATIENT
  Age: 82 Year
  Sex: Female
  Weight: 86 kg

DRUGS (1)
  1. EPKINLY [Suspect]
     Active Substance: EPCORITAMAB-BYSP
     Indication: B-cell lymphoma
     Dosage: 1 DOSAGE FORM, EVERY 1 WEEKS
     Route: 058
     Dates: start: 20240227, end: 20240604

REACTIONS (1)
  - Neuropathy peripheral [Not Recovered/Not Resolved]

NARRATIVE: CASE EVENT DATE: 20240515
